FAERS Safety Report 9208078 (Version 2)
Quarter: 2013Q3

REPORT INFORMATION
  Report Type: Spontaneous
  Country: US (occurrence: US)
  Receive Date: 20130403
  Receipt Date: 20130910
  Transmission Date: 20140515
  Serious: No
  Sender: FDA-Public Use
  Company Number: US-ASTRAZENECA-2013SE18725

PATIENT
  Sex: Male

DRUGS (4)
  1. CRESTOR [Suspect]
     Route: 048
  2. CRESTOR [Suspect]
     Dosage: GENERIC
     Route: 048
  3. LIPITOR [Concomitant]
  4. LIPITOR [Concomitant]
     Dosage: GENERIC

REACTIONS (4)
  - Dysentery [Unknown]
  - Blood cholesterol increased [Unknown]
  - Myalgia [Unknown]
  - Muscle spasms [Unknown]
